FAERS Safety Report 22203833 (Version 1)
Quarter: 2023Q2

REPORT INFORMATION
  Report Type: Spontaneous
  Country: CA (occurrence: CA)
  Receive Date: 20230412
  Receipt Date: 20230412
  Transmission Date: 20230722
  Serious: No
  Sender: FDA-Public Use
  Company Number: CA-Sprout Pharmaceuticals, Inc.-2023SP000101

PATIENT
  Age: 68 Year
  Sex: Female

DRUGS (1)
  1. ADDYI [Suspect]
     Active Substance: FLIBANSERIN
     Indication: Product used for unknown indication
     Dosage: 1 TABLET AT NIGHT
     Route: 048
     Dates: start: 20230316

REACTIONS (3)
  - Presyncope [Unknown]
  - Feeling of body temperature change [Unknown]
  - Tachycardia [Unknown]
